FAERS Safety Report 7825910-4 (Version None)
Quarter: 2011Q4

REPORT INFORMATION
  Report Type: 
  Country: None (occurrence: None)
  Receive Date: 20111019
  Receipt Date: 20111007
  Transmission Date: 20120403
  Serious: Yes (Hospitalization, Other)
  Sender: FDA-Public Use
  Company Number: US-ROCHE-694395

PATIENT
  Sex: Female
  Weight: 59.9 kg

DRUGS (4)
  1. ACCUTANE [Suspect]
     Indication: HIDRADENITIS
     Route: 048
     Dates: start: 20000802, end: 20010101
  2. TYLENOL W/ CODEINE [Concomitant]
  3. ZITHROMAX [Concomitant]
  4. PURINETHOL [Concomitant]

REACTIONS (13)
  - COLITIS ULCERATIVE [None]
  - ERYTHEMA NODOSUM [None]
  - BLOOD CHOLESTEROL INCREASED [None]
  - SMALL INTESTINAL OBSTRUCTION [None]
  - VAGINAL FISTULA [None]
  - SHORT-BOWEL SYNDROME [None]
  - ASPARTATE AMINOTRANSFERASE INCREASED [None]
  - DEPRESSION [None]
  - ALANINE AMINOTRANSFERASE INCREASED [None]
  - ORAL HERPES [None]
  - DRY SKIN [None]
  - PYODERMA GANGRENOSUM [None]
  - INFLAMMATORY BOWEL DISEASE [None]
